FAERS Safety Report 6658579-5 (Version None)
Quarter: 2010Q1

REPORT INFORMATION
  Report Type: 
  Country: None (occurrence: None)
  Receive Date: 20100330
  Receipt Date: 20100304
  Transmission Date: 20100710
  Serious: No
  Sender: FDA-Public Use
  Company Number: US-BIOGENIDEC-2010BI007699

PATIENT
  Age: 44 Year
  Sex: Female

DRUGS (4)
  1. TYSABRI [Suspect]
     Indication: MULTIPLE SCLEROSIS
     Route: 042
     Dates: start: 20090301
  2. AVONEX [Concomitant]
     Route: 030
     Dates: end: 20010901
  3. AVONEX [Concomitant]
     Route: 030
     Dates: start: 20030101
  4. AVONEX [Concomitant]
     Route: 030

REACTIONS (2)
  - MIDDLE EAR EFFUSION [None]
  - SINUSITIS [None]
